FAERS Safety Report 6415078-3 (Version None)
Quarter: 2009Q4

REPORT INFORMATION
  Report Type: 
  Country: None (occurrence: None)
  Receive Date: 20091021
  Receipt Date: 20091006
  Transmission Date: 20100525
  Serious: Yes (Hospitalization, Disabling, Other)
  Sender: FDA-Public Use
  Company Number: 2009AP004053

PATIENT
  Age: 85 Year
  Sex: Female

DRUGS (7)
  1. AMIODARONE HCL [Suspect]
     Indication: ATRIAL FIBRILLATION
     Dosage: 200 MG;
  2. FUROSEMIDE [Concomitant]
  3. DIGOXIN [Concomitant]
  4. CLOPIDOGREL [Concomitant]
  5. PERINDOPRIL ERBUMINE [Concomitant]
  6. OMEPRAZOLE [Concomitant]
  7. CARVEDILOL [Concomitant]

REACTIONS (14)
  - ABDOMINAL DISTENSION [None]
  - ACTIVITIES OF DAILY LIVING IMPAIRED [None]
  - AREFLEXIA [None]
  - CARDIOTOXICITY [None]
  - GASTROINTESTINAL SOUNDS ABNORMAL [None]
  - HEART RATE DECREASED [None]
  - HEPATOTOXICITY [None]
  - HYPOTHYROIDISM [None]
  - LIVER FUNCTION TEST ABNORMAL [None]
  - MENTAL IMPAIRMENT [None]
  - MYXOEDEMA [None]
  - PERIPHERAL SENSORY NEUROPATHY [None]
  - PLEURAL EFFUSION [None]
  - TROPONIN I INCREASED [None]
